FAERS Safety Report 24781221 (Version 1)
Quarter: 2024Q4

REPORT INFORMATION
  Report Type: Spontaneous
  Country: US (occurrence: US)
  Receive Date: 20241227
  Receipt Date: 20241227
  Transmission Date: 20250115
  Serious: No
  Sender: CSL BEHRING
  Company Number: US-BEH-2024188907

PATIENT
  Sex: Female

DRUGS (62)
  1. HIZENTRA [Suspect]
     Active Substance: HUMAN IMMUNOGLOBULIN G
     Indication: Immunodeficiency common variable
     Dosage: 4 G/20ML, ONCE EVERY 2 WEEK
     Route: 058
     Dates: start: 20230525
  2. ASPIRIN [Concomitant]
     Active Substance: ASPIRIN
     Dosage: 81 MG
  3. Azelastine force [Concomitant]
     Dosage: 0.15 %
  4. BACLOFEN [Concomitant]
     Active Substance: BACLOFEN
     Dosage: 20 MG
  5. BACLOFEN [Concomitant]
     Active Substance: BACLOFEN
     Dosage: 5 MG
  6. CANNABIDIOL [Concomitant]
     Active Substance: CANNABIDIOL
  7. CELEBREX [Concomitant]
     Active Substance: CELECOXIB
     Dosage: 200 MG
  8. CLARITIN-D NOS [Concomitant]
     Active Substance: LORATADINE\PSEUDOEPHEDRINE SULFATE
     Dosage: 120 MG
  9. CLONAZEPAM [Concomitant]
     Active Substance: CLONAZEPAM
     Dosage: 1 MG
  10. CLOPIDOGREL [Concomitant]
     Active Substance: CLOPIDOGREL BISULFATE
     Dosage: 75 MG
  11. COENZYME Q10 [Concomitant]
     Active Substance: DIETARY SUPPLEMENT\UBIDECARENONE
     Dosage: 30 MG
  12. COLESEVELAM [Concomitant]
     Active Substance: COLESEVELAM
     Dosage: 625 MG
  13. CURCUMIN [Concomitant]
     Active Substance: CURCUMIN
  14. DESMOPRESSIN [Concomitant]
     Active Substance: DESMOPRESSIN
     Dosage: 0.1 MG
  15. PRASTERONE [Concomitant]
     Active Substance: PRASTERONE
     Dosage: 50 MG
  16. EPINEPHRINE [Concomitant]
     Active Substance: EPINEPHRINE
     Dosage: 0.3 MG
  17. ESCITALOPRAM [Concomitant]
     Active Substance: ESCITALOPRAM OXALATE
     Dosage: 10 MG
  18. ESTRADIOL [Concomitant]
     Active Substance: ESTRADIOL
     Dosage: 10 MCG
  19. ESTROGEL [Concomitant]
     Active Substance: ESTRADIOL
     Dosage: 0.06 %
  20. EZETIMIBE [Concomitant]
     Active Substance: EZETIMIBE
     Dosage: 10 MG
  21. FISH OIL [Concomitant]
     Active Substance: FISH OIL
     Dosage: 1000 MG
  22. A-HYDROCORT [Concomitant]
     Active Substance: HYDROCORTISONE SODIUM SUCCINATE
     Dosage: 10 MG
  23. IMVEXXY [Concomitant]
     Active Substance: ESTRADIOL
     Dosage: 10 MCG
  24. IRON [Concomitant]
     Active Substance: IRON
  25. KETOROLAC [Concomitant]
     Active Substance: KETOROLAC TROMETHAMINE
     Dosage: 0.5 MG
  26. LEVALBUTEROL [Concomitant]
     Active Substance: LEVALBUTEROL
     Dosage: 45/ACT
  27. LEVALBUTEROL [Concomitant]
     Active Substance: LEVALBUTEROL
     Dosage: 1.25 MG
  28. LIDOCAINE\PRILOCAINE [Concomitant]
     Active Substance: LIDOCAINE\PRILOCAINE
     Dosage: 2.5 %
  29. LUMIFY [Concomitant]
     Active Substance: BRIMONIDINE TARTRATE
     Dosage: 0.025 %
  30. MAGNESIUM [Concomitant]
     Active Substance: MAGNESIUM
     Dosage: 250 MG
  31. RIZATRIPTAN [Concomitant]
     Active Substance: RIZATRIPTAN
     Dosage: 10 MG
  32. MELOXICAM [Concomitant]
     Active Substance: MELOXICAM
     Dosage: 7.5 MG
  33. METFORMIN [Concomitant]
     Active Substance: METFORMIN HYDROCHLORIDE
     Dosage: 500 MG
  34. METHOCARBAMOL [Concomitant]
     Active Substance: METHOCARBAMOL
     Dosage: 500 MG
  35. METRONIDAZOLE [Concomitant]
     Active Substance: METRONIDAZOLE
     Dosage: 0.75 %
  36. MONTELUKAST [Concomitant]
     Active Substance: MONTELUKAST SODIUM
     Dosage: 10 MG
  37. MOUNJARO [Concomitant]
     Active Substance: TIRZEPATIDE
     Dosage: 5 MG
  38. MOUNJARO [Concomitant]
     Active Substance: TIRZEPATIDE
     Dosage: 7.5 MG
  39. NALTREXONE [Concomitant]
     Active Substance: NALTREXONE
     Dosage: 50 MG
  40. NASACORT [Concomitant]
     Active Substance: TRIAMCINOLONE ACETONIDE
     Dosage: 55 MCG
  41. NATTOKINASE [Concomitant]
     Active Substance: NATTOKINASE
     Dosage: 100 MG
  42. NEXIUM [Concomitant]
     Active Substance: ESOMEPRAZOLE MAGNESIUM
     Dosage: 20 MG
  43. NICOTINAMIDE [Concomitant]
     Active Substance: NIACINAMIDE
     Dosage: POW
  44. ADENINE [Concomitant]
     Active Substance: ADENINE
  45. NUCALA [Concomitant]
     Active Substance: MEPOLIZUMAB
     Dosage: 100 MG
  46. OXYTOCIN [Concomitant]
     Active Substance: OXYTOCIN
     Dosage: 0.1 %
  47. PATADAY [Concomitant]
     Active Substance: OLOPATADINE HYDROCHLORIDE
  48. PLAVIX [Concomitant]
     Active Substance: CLOPIDOGREL BISULFATE
     Dosage: 75 MG
  49. PREGNENOLONE [Concomitant]
     Active Substance: PREGNENOLONE
     Dosage: POW
  50. MINERALS\VITAMINS [Concomitant]
     Active Substance: MINERALS\VITAMINS
  51. PROGESTERONE [Concomitant]
     Active Substance: PROGESTERONE
     Dosage: 100 MG
  52. PULMICORT TURBUHALER [Concomitant]
     Active Substance: BUDESONIDE
     Dosage: 180 MCG
  53. DIETARY SUPPLEMENT\RESVERATROL [Concomitant]
     Active Substance: DIETARY SUPPLEMENT\RESVERATROL
     Dosage: POW
  54. HYALURONATE SODIUM [Concomitant]
     Active Substance: HYALURONATE SODIUM
     Dosage: 25/2.5ML
  55. SYNTHROID [Concomitant]
     Active Substance: LEVOTHYROXINE SODIUM
     Dosage: 112MCG
  56. TEZSPIRE [Concomitant]
     Active Substance: TEZEPELUMAB-EKKO
     Dosage: 21 OMC
  57. TEZSPIRE [Concomitant]
     Active Substance: TEZEPELUMAB-EKKO
     Dosage: 210 MG
  58. TRAZODONE [Concomitant]
     Active Substance: TRAZODONE HYDROCHLORIDE
     Dosage: 100 MG
  59. TRAZODONE [Concomitant]
     Active Substance: TRAZODONE HYDROCHLORIDE
     Dosage: 50 MG
  60. TRELEGY ELLIPTA [Concomitant]
     Active Substance: FLUTICASONE FUROATE\UMECLIDINIUM BROMIDE\VILANTEROL TRIFENATATE
     Dosage: 200 MCG
  61. ZETIA [Concomitant]
     Active Substance: EZETIMIBE
     Dosage: 10 MG
  62. ZYRTEC-D [Concomitant]
     Active Substance: CETIRIZINE HYDROCHLORIDE\PSEUDOEPHEDRINE HYDROCHLORIDE
     Dosage: 5-120MG

REACTIONS (2)
  - Asthma [Unknown]
  - Injection site pain [Unknown]
